FAERS Safety Report 10642776 (Version 6)
Quarter: 2017Q3

REPORT INFORMATION
  Report Type: Report from Study
  Country: FR (occurrence: FR)
  Receive Date: 20141210
  Receipt Date: 20170906
  Transmission Date: 20171127
  Serious: Yes (Other)
  Sender: FDA-Public Use
  Company Number: FR-JNJFOC-20141202191

PATIENT

DRUGS (3)
  1. HALDOL [Suspect]
     Active Substance: HALOPERIDOL
     Indication: PRODUCT USED FOR UNKNOWN INDICATION
     Route: 065
  2. CLOPIXOL [Suspect]
     Active Substance: ZUCLOPENTHIXOL ACETATE
     Indication: PRODUCT USED FOR UNKNOWN INDICATION
     Route: 065
  3. HALDOL DECANOAS [Suspect]
     Active Substance: HALOPERIDOL DECANOATE
     Indication: PSYCHOTIC DISORDER
     Route: 030

REACTIONS (6)
  - Visual impairment [Recovered/Resolved]
  - Eye disorder [Unknown]
  - Impatience [Unknown]
  - Feeling abnormal [Unknown]
  - Blepharospasm [Recovered/Resolved]
  - Tardive dyskinesia [Unknown]
